FAERS Safety Report 9797143 (Version 1)
Quarter: 2014Q1

REPORT INFORMATION
  Report Type: Spontaneous
  Country: CH (occurrence: CH)
  Receive Date: 20140106
  Receipt Date: 20140106
  Transmission Date: 20141002
  Serious: Yes (Hospitalization, Other)
  Sender: FDA-Public Use
  Company Number: CH-009507513-1312CHE012661

PATIENT
  Age: 89 Year
  Sex: Female

DRUGS (14)
  1. FOSAMAX [Suspect]
     Indication: OSTEOPOROTIC FRACTURE
     Dosage: UNK, ONCE PER WEEK
     Route: 048
     Dates: start: 2000, end: 2010
  2. ESOMEPRAZOLE MAGNESIUM [Suspect]
     Dosage: TOTAL DAILY DOSE 40MG, ONCE DAILY
     Route: 048
  3. ASPIRIN CARDIO [Concomitant]
     Dosage: 100 MG,1 PER 1 DAY(S)
     Route: 048
  4. CONCOR [Concomitant]
     Dosage: 5 MG,1 PER 1DAY(S)
     Route: 048
  5. APROVEL [Concomitant]
     Dosage: 300 MG, 1 PER 1 DAY
     Route: 048
  6. TORSEMIDE [Concomitant]
     Dosage: 15 MG, 1 PER 1 DAY(S)
     Route: 048
  7. PRAVASTATIN SODIUM [Concomitant]
     Dosage: 40 MG, 1 PER 1 DAY(S)
     Route: 048
  8. DAFALGAN [Concomitant]
     Dosage: 1 G, 3 PER 1 DAY(S)
     Route: 048
  9. CALCIMAGON D3 [Concomitant]
     Dosage: 1 DF, 2 PER 1 DAY(S)
     Route: 048
  10. GYNO-TARDYFERON [Concomitant]
     Dosage: 1 DF, 1 PER 1 DAY(S)
     Route: 048
  11. TEMESTA [Concomitant]
     Dosage: 1 MG, AS NECESSARY
     Route: 048
  12. DETRUSITOL [Concomitant]
     Dosage: 4 MG, 1 PER 1 DAY(S)
     Route: 048
  13. ALLOPUR [Concomitant]
     Dosage: 100 MG, 1 PER 1 DAY(S)
     Route: 048
  14. ARANESP (DARBEPOETIN ALFA) [Concomitant]
     Dosage: 40?G, 1 PER 1 MONTH
     Route: 058

REACTIONS (1)
  - Femur fracture [Recovered/Resolved with Sequelae]
